FAERS Safety Report 19377228 (Version 1)
Quarter: 2021Q2

REPORT INFORMATION
  Report Type: Spontaneous
  Country: FR (occurrence: FR)
  Receive Date: 20210604
  Receipt Date: 20210604
  Transmission Date: 20210717
  Serious: Yes (Death)
  Sender: FDA-Public Use
  Company Number: FR-MYLANLABS-2021M1032359

PATIENT
  Age: 72 Year
  Sex: Male
  Weight: 98.5 kg

DRUGS (3)
  1. CEFTRIAXONE MYLAN 2 G, POUDRE POUR SOLUTION INJECTABLE I.V. [Suspect]
     Active Substance: CEFTRIAXONE SODIUM
     Indication: OSTEITIS
     Dosage: 2 GRAM, QD
     Route: 042
     Dates: start: 20200826, end: 20200928
  2. TAMSULOSINE MYLAN L.P. 0,4 MG, G?LULE ? LIB?RATION PROLONG?E [Suspect]
     Active Substance: TAMSULOSIN HYDROCHLORIDE
     Indication: BENIGN PROSTATIC HYPERPLASIA
     Dosage: 0.4 MILLIGRAM, QD
     Route: 048
     Dates: start: 20200822, end: 20200928
  3. METRONIDAZOLE. [Suspect]
     Active Substance: METRONIDAZOLE
     Indication: OSTEITIS
     Dosage: 1500 MILLIGRAM, QD
     Route: 048
     Dates: start: 20200825, end: 20200928

REACTIONS (1)
  - Drug reaction with eosinophilia and systemic symptoms [Fatal]

NARRATIVE: CASE EVENT DATE: 202009
